FAERS Safety Report 9015102 (Version 1)
Quarter: 2013Q1

REPORT INFORMATION
  Report Type: Spontaneous
  Country: US (occurrence: None)
  Receive Date: 20130109
  Receipt Date: 20130109
  Transmission Date: 20140127
  Serious: No
  Sender: FDA-Public Use
  Company Number: None

PATIENT
  Age: 51 Year
  Sex: Female

DRUGS (2)
  1. PEGASYS PFS 180MCG ABBOTT [Suspect]
     Route: 058
     Dates: start: 20121011
  2. RIBAVIRIN TABLETS 200MG ZYDUS [Suspect]
     Route: 048
     Dates: start: 20121011

REACTIONS (3)
  - Tremor [None]
  - Blood thyroid stimulating hormone decreased [None]
  - White blood cell count decreased [None]
